FAERS Safety Report 16539287 (Version 2)
Quarter: 2020Q1

REPORT INFORMATION
  Report Type: Spontaneous
  Country: GB (occurrence: GB)
  Receive Date: 20190708
  Receipt Date: 20200305
  Transmission Date: 20200409
  Serious: Yes (Other)
  Sender: FDA-Public Use
  Company Number: GB-PFIZER INC-2019285381

PATIENT
  Age: 81 Year
  Sex: Female
  Weight: 60 kg

DRUGS (6)
  1. ISOSORBIDE. [Concomitant]
     Active Substance: ISOSORBIDE
     Dosage: 40 MG
     Route: 065
  2. ADIZEM [Concomitant]
     Active Substance: DILTIAZEM HYDROCHLORIDE
     Dosage: UNK
     Route: 065
  3. NICORANDIL [Concomitant]
     Active Substance: NICORANDIL
     Dosage: 40 MG, UNK
     Route: 065
  4. DABIGATRAN [Concomitant]
     Active Substance: DABIGATRAN
     Dosage: 220 MG
     Route: 065
  5. LEVOTHYROXINE. [Concomitant]
     Active Substance: LEVOTHYROXINE
     Dosage: 100 UG
     Route: 065
  6. AMIODARONE HCL [Suspect]
     Active Substance: AMIODARONE HYDROCHLORIDE
     Dosage: 200 MG, UNK
     Route: 065
     Dates: start: 20180418, end: 20190410

REACTIONS (11)
  - Peripheral swelling [Recovered/Resolved]
  - Taste disorder [Recovered/Resolved]
  - Confusional state [Recovered/Resolved]
  - Dizziness [Not Recovered/Not Resolved]
  - Injury corneal [Not Recovered/Not Resolved]
  - Heart rate decreased [Not Recovered/Not Resolved]
  - Corneal deposits [Not Recovered/Not Resolved]
  - Eye disorder [Recovering/Resolving]
  - Malaise [Not Recovered/Not Resolved]
  - Diarrhoea [Recovered/Resolved]
  - Tremor [Recovered/Resolved]

NARRATIVE: CASE EVENT DATE: 201807
